FAERS Safety Report 6729692-9 (Version None)
Quarter: 2010Q2

REPORT INFORMATION
  Report Type: 
  Country: None (occurrence: None)
  Receive Date: 20100518
  Receipt Date: 20100512
  Transmission Date: 20101027
  Serious: Yes (Other)
  Sender: FDA-Public Use
  Company Number: JP-JNJFOC-20100406283

PATIENT
  Age: 8 Decade
  Sex: Female

DRUGS (4)
  1. RISPERDAL [Suspect]
     Indication: DRUG USE FOR UNKNOWN INDICATION
     Route: 048
  2. RISPERDAL [Suspect]
     Route: 048
  3. RISPERDAL [Suspect]
     Route: 048
  4. BUP 4 [Concomitant]
     Route: 048

REACTIONS (3)
  - DELIRIUM [None]
  - HYPERTONIC BLADDER [None]
  - URINE OUTPUT INCREASED [None]
